FAERS Safety Report 8613093-2 (Version None)
Quarter: 2012Q3

REPORT INFORMATION
  Report Type: 
  Country: None (occurrence: None)
  Receive Date: 20120822
  Receipt Date: 20120810
  Transmission Date: 20120928
  Serious: Yes (Other)
  Sender: FDA-Public Use
  Company Number: US-009507513-2011SP035862

PATIENT

DRUGS (3)
  1. IMITREX [Concomitant]
     Indication: MIGRAINE
     Dates: start: 20040101
  2. NUVARING [Suspect]
     Indication: CONTRACEPTION
     Dosage: UNK
     Dates: start: 20050101, end: 20070801
  3. NUVARING [Suspect]
     Dosage: UNK

REACTIONS (20)
  - BACK PAIN [None]
  - DERMAL CYST [None]
  - CYST [None]
  - DYSPEPSIA [None]
  - BRONCHITIS [None]
  - ANXIETY [None]
  - MENSTRUATION IRREGULAR [None]
  - POLYCYSTIC OVARIES [None]
  - HERPES ZOSTER [None]
  - OEDEMA PERIPHERAL [None]
  - OTITIS EXTERNA [None]
  - HEADACHE [None]
  - LACERATION [None]
  - THROMBOPHLEBITIS SUPERFICIAL [None]
  - DEEP VEIN THROMBOSIS [None]
  - THROMBOSIS [None]
  - GASTROOESOPHAGEAL REFLUX DISEASE [None]
  - CHOLELITHIASIS [None]
  - ROAD TRAFFIC ACCIDENT [None]
  - VIITH NERVE PARALYSIS [None]
